FAERS Safety Report 13593897 (Version 1)
Quarter: 2017Q2

REPORT INFORMATION
  Report Type: Spontaneous
  Country: AU (occurrence: AU)
  Receive Date: 20170530
  Receipt Date: 20170530
  Transmission Date: 20170830
  Serious: Yes (Other)
  Sender: FDA-Public Use
  Company Number: AU-PFIZER INC-2017232376

PATIENT
  Age: 78 Year
  Sex: Female
  Weight: 75 kg

DRUGS (8)
  1. CELECOXIB. [Suspect]
     Active Substance: CELECOXIB
     Dosage: UNK
  2. PREDNISOLONE. [Suspect]
     Active Substance: PREDNISOLONE
     Dosage: UNK
  3. ASPIRIN /00002701/ [Suspect]
     Active Substance: ASPIRIN
  4. TELMISARTAN. [Suspect]
     Active Substance: TELMISARTAN
     Dosage: UNK
  5. METFORMIN [Suspect]
     Active Substance: METFORMIN HYDROCHLORIDE
     Dosage: UNK
  6. GLICLAZIDE [Suspect]
     Active Substance: GLICLAZIDE
     Dosage: UNK
  7. ATORVASTATIN CALCIUM. [Suspect]
     Active Substance: ATORVASTATIN CALCIUM
     Dosage: UNK
  8. PANADOL [Suspect]
     Active Substance: ACETAMINOPHEN
     Dosage: UNK

REACTIONS (2)
  - Cardiac disorder [Unknown]
  - Atrial fibrillation [Unknown]
